FAERS Safety Report 11202697 (Version 1)
Quarter: 2015Q2

REPORT INFORMATION
  Report Type: Spontaneous
  Country: CN (occurrence: CN)
  Receive Date: 20150619
  Receipt Date: 20150619
  Transmission Date: 20150821
  Serious: Yes (Other)
  Sender: FDA-Public Use
  Company Number: CN-JNJFOC-20150603945

PATIENT
  Age: 63 Year
  Sex: Male

DRUGS (5)
  1. DUROGESIC D-TRANS [Suspect]
     Active Substance: FENTANYL
     Indication: HEADACHE
     Route: 062
     Dates: start: 20150602, end: 20150603
  2. DICLOFENAC/ LIDOCAINE [Suspect]
     Active Substance: DICLOFENAC SODIUM\LIDOCAINE
     Indication: PRODUCT USED FOR UNKNOWN INDICATION
     Route: 030
     Dates: start: 20150608
  3. DUROGESIC D-TRANS [Suspect]
     Active Substance: FENTANYL
     Indication: PAIN IN EXTREMITY
     Route: 062
     Dates: start: 20150602, end: 20150603
  4. DUROGESIC D-TRANS [Suspect]
     Active Substance: FENTANYL
     Indication: PAIN IN EXTREMITY
     Route: 062
     Dates: start: 20150608
  5. DUROGESIC D-TRANS [Suspect]
     Active Substance: FENTANYL
     Indication: HEADACHE
     Route: 062
     Dates: start: 20150608

REACTIONS (6)
  - Urinary retention [Not Recovered/Not Resolved]
  - Wrong technique in drug usage process [Unknown]
  - Nausea [Recovered/Resolved]
  - Vomiting [Recovered/Resolved]
  - Coma [Not Recovered/Not Resolved]
  - Chest discomfort [Recovered/Resolved]

NARRATIVE: CASE EVENT DATE: 20150602
